FAERS Safety Report 6122353-9 (Version None)
Quarter: 2009Q1

REPORT INFORMATION
  Report Type: 
  Country: None (occurrence: None)
  Receive Date: 20090316
  Receipt Date: 20090316
  Transmission Date: 20090719
  Serious: Yes (Other)
  Sender: FDA-Public Use
  Company Number: None

PATIENT
  Age: 51 Year
  Sex: Male
  Weight: 117.9352 kg

DRUGS (1)
  1. NABUMETONE [Suspect]
     Indication: PAIN IN EXTREMITY
     Dosage: 500 MG 2 TIMES DAILY
     Dates: start: 20090306, end: 20090308

REACTIONS (2)
  - DIZZINESS [None]
  - IMPAIRED WORK ABILITY [None]
